FAERS Safety Report 6331598-4 (Version None)
Quarter: 2009Q3

REPORT INFORMATION
  Report Type: 
  Country: None (occurrence: None)
  Receive Date: 20090827
  Receipt Date: 20090820
  Transmission Date: 20100115
  Serious: Yes (Other)
  Sender: FDA-Public Use
  Company Number: US-WYE-H03896808

PATIENT
  Sex: Female
  Weight: 58.57 kg

DRUGS (3)
  1. PREMARIN [Suspect]
     Indication: HORMONE REPLACEMENT THERAPY
  2. PROVERA [Suspect]
  3. ESTINYL [Suspect]

REACTIONS (1)
  - CONTRALATERAL BREAST CANCER [None]
